FAERS Safety Report 25757640 (Version 1)
Quarter: 2025Q3

REPORT INFORMATION
  Report Type: Spontaneous
  Country: EU (occurrence: EU)
  Receive Date: 20250903
  Receipt Date: 20250903
  Transmission Date: 20251020
  Serious: Yes (Other)
  Sender: MYLAN
  Company Number: EU-Accord-500018

PATIENT
  Age: 34 Year
  Sex: Male

DRUGS (12)
  1. MYCOPHENOLATE MOFETIL [Suspect]
     Active Substance: MYCOPHENOLATE MOFETIL
     Indication: Sarcoidosis
     Dosage: 1 GRAM, BID (TOTAL OF 2 G PER DAY)
  2. MYCOPHENOLATE MOFETIL [Suspect]
     Active Substance: MYCOPHENOLATE MOFETIL
     Dosage: 1 GRAM, BID (TOTAL OF 2 G PER DAY)
     Route: 065
  3. MYCOPHENOLATE MOFETIL [Suspect]
     Active Substance: MYCOPHENOLATE MOFETIL
     Dosage: 1 GRAM, BID (TOTAL OF 2 G PER DAY)
     Route: 065
  4. MYCOPHENOLATE MOFETIL [Suspect]
     Active Substance: MYCOPHENOLATE MOFETIL
     Dosage: 1 GRAM, BID (TOTAL OF 2 G PER DAY)
  5. INFLIXIMAB [Suspect]
     Active Substance: INFLIXIMAB
     Indication: Sarcoidosis
  6. INFLIXIMAB [Suspect]
     Active Substance: INFLIXIMAB
     Route: 065
  7. INFLIXIMAB [Suspect]
     Active Substance: INFLIXIMAB
     Route: 065
  8. INFLIXIMAB [Suspect]
     Active Substance: INFLIXIMAB
  9. LACOSAMIDE [Concomitant]
     Active Substance: LACOSAMIDE
     Indication: Epilepsy
  10. LACOSAMIDE [Concomitant]
     Active Substance: LACOSAMIDE
     Route: 065
  11. LACOSAMIDE [Concomitant]
     Active Substance: LACOSAMIDE
     Route: 065
  12. LACOSAMIDE [Concomitant]
     Active Substance: LACOSAMIDE

REACTIONS (3)
  - Eye infection toxoplasmal [Recovering/Resolving]
  - Infection reactivation [Recovering/Resolving]
  - Off label use [Unknown]
